FAERS Safety Report 6238672-1 (Version None)
Quarter: 2009Q2

REPORT INFORMATION
  Report Type: 
  Country: None (occurrence: None)
  Receive Date: 20090622
  Receipt Date: 20090609
  Transmission Date: 20091009
  Serious: Yes (Other)
  Sender: FDA-Public Use
  Company Number: CR-ELI_LILLY_AND_COMPANY-CR200905002377

PATIENT
  Age: 46 Year
  Sex: Female

DRUGS (2)
  1. DULOXETINE HYDROCHLORIDE [Suspect]
     Indication: FIBROMYALGIA
     Dosage: 60 MG, DAILY (1/D)
     Route: 048
     Dates: start: 20090301
  2. LYRICA [Concomitant]

REACTIONS (6)
  - DYSPNOEA [None]
  - FLUSHING [None]
  - HYPERHIDROSIS [None]
  - HYPERTENSION [None]
  - MALAISE [None]
  - RASH [None]
